FAERS Safety Report 25521344 (Version 3)
Quarter: 2025Q4

REPORT INFORMATION
  Report Type: Other
  Country: US (occurrence: US)
  Receive Date: 20250705
  Receipt Date: 20251009
  Transmission Date: 20260118
  Serious: Yes (Hospitalization)
  Sender: TRAVERE THERAPEUTICS
  Company Number: US-TRAVERE-2025TVT00907

PATIENT
  Age: 39 Year
  Sex: Male

DRUGS (1)
  1. FILSPARI [Suspect]
     Active Substance: SPARSENTAN
     Indication: IgA nephropathy
     Route: 048
     Dates: start: 20250508, end: 20250630

REACTIONS (4)
  - Muscle spasms [Recovered/Resolved]
  - Flank pain [Unknown]
  - Chest pain [Unknown]
  - Dehydration [Unknown]

NARRATIVE: CASE EVENT DATE: 20250513
